FAERS Safety Report 12586969 (Version 1)
Quarter: 2016Q3

REPORT INFORMATION
  Report Type: Report from Study
  Country: AU (occurrence: AU)
  Receive Date: 20160725
  Receipt Date: 20160725
  Transmission Date: 20161109
  Serious: Yes (Other)
  Sender: FDA-Public Use
  Company Number: PHHO2014AU017818

PATIENT
  Age: 60 Year
  Sex: Male
  Weight: 71 kg

DRUGS (27)
  1. EVEROLIMUS [Suspect]
     Active Substance: EVEROLIMUS
     Indication: METASTATIC RENAL CELL CARCINOMA
     Dosage: 10 MG, QD
     Route: 048
     Dates: start: 20131021, end: 20140210
  2. ATENOLOL. [Suspect]
     Active Substance: ATENOLOL
     Indication: HYPERTENSION
     Dosage: 50 QD
     Route: 048
     Dates: start: 20130904, end: 20130919
  3. ATENOLOL. [Suspect]
     Active Substance: ATENOLOL
     Dosage: 100 BID
     Route: 048
     Dates: start: 20130925, end: 20130925
  4. ENDONE [Concomitant]
     Active Substance: OXYCODONE HYDROCHLORIDE
     Indication: PAIN
     Dosage: 5 QID
     Route: 048
     Dates: start: 20140317
  5. MAXOLON [Suspect]
     Active Substance: METOCLOPRAMIDE HYDROCHLORIDE
     Indication: PROPHYLAXIS OF NAUSEA AND VOMITING
     Dosage: 10 MG, QID
     Route: 048
  6. PREGABALIN. [Suspect]
     Active Substance: PREGABALIN
     Dosage: 150 QD
     Route: 048
  7. MOVICOL [Suspect]
     Active Substance: POLYETHYLENE GLYCOL 3350\POTASSIUM CHLORIDE\SODIUM BICARBONATE\SODIUM CHLORIDE
     Indication: CONSTIPATION PROPHYLAXIS
     Dosage: 1 DF, QD
     Route: 048
  8. DILANTIN [Concomitant]
     Active Substance: PHENYTOIN
     Indication: SEIZURE
     Dosage: 100 QD
     Route: 048
     Dates: start: 20140317, end: 20140406
  9. PANADOL [Suspect]
     Active Substance: ACETAMINOPHEN
     Indication: PAIN
     Dosage: 1 G, QID
     Route: 048
  10. HYDROCHLOROTHIAZIDE. [Concomitant]
     Active Substance: HYDROCHLOROTHIAZIDE
     Indication: HYPERTENSION
     Dosage: 1 QD
     Route: 048
     Dates: start: 20130904
  11. KEPPRA [Concomitant]
     Active Substance: LEVETIRACETAM
     Indication: CONVULSION PROPHYLAXIS
     Dosage: 500 BID
     Route: 048
     Dates: start: 20140406
  12. ATENOLOL. [Suspect]
     Active Substance: ATENOLOL
     Dosage: 50 QD
     Route: 048
     Dates: start: 20131022, end: 20131215
  13. COLOXYL WITH SENNA [Concomitant]
     Active Substance: DOCUSATE\SENNOSIDES
     Indication: CONSTIPATION PROPHYLAXIS
     Dosage: 2 BID
     Route: 048
     Dates: start: 20140317
  14. DEXAMETHASONE. [Concomitant]
     Active Substance: DEXAMETHASONE
     Indication: BRAIN OEDEMA
     Dosage: 4 QID
     Route: 048
     Dates: start: 20140318, end: 20140325
  15. EVEROLIMUS [Suspect]
     Active Substance: EVEROLIMUS
     Dosage: 5 MG, UNK
     Route: 048
     Dates: start: 20140217
  16. ATENOLOL. [Suspect]
     Active Substance: ATENOLOL
     Dosage: 50 QD
     Route: 048
     Dates: start: 20140213, end: 20140217
  17. OXYCODONE [Concomitant]
     Active Substance: OXYCODONE
     Indication: PAIN
     Dosage: 40 QD
     Route: 048
     Dates: start: 20140317
  18. PRESSIN [Concomitant]
     Indication: HYPERTENSION
     Dosage: 1 TID
     Route: 048
     Dates: start: 20140406
  19. PAZOPANIB [Suspect]
     Active Substance: PAZOPANIB
     Indication: METASTATIC RENAL CELL CARCINOMA
     Dosage: 600 MG, QD
     Route: 065
     Dates: start: 20130822, end: 20131017
  20. KARVEZIDE [Suspect]
     Active Substance: HYDROCHLOROTHIAZIDE\IRBESARTAN
     Indication: HYPERTENSION
     Dosage: 1 DF, QD
     Route: 048
     Dates: start: 20130904
  21. PREGABALIN. [Suspect]
     Active Substance: PREGABALIN
     Indication: NEURALGIA
     Dosage: 75 QD
     Route: 048
  22. OXYCONTIN [Concomitant]
     Active Substance: OXYCODONE HYDROCHLORIDE
     Indication: PAIN
     Dosage: 20 MG, BID
     Route: 048
  23. AMLODIPINE [Concomitant]
     Active Substance: AMLODIPINE BESYLATE
     Indication: HYPERTENSION
     Dosage: 5 QD
     Route: 048
     Dates: start: 20130926, end: 20131021
  24. ATENOLOL. [Suspect]
     Active Substance: ATENOLOL
     Dosage: 50 BID
     Route: 048
     Dates: start: 20130919, end: 20130924
  25. ATENOLOL. [Suspect]
     Active Substance: ATENOLOL
     Dosage: 25 QD
     Route: 048
     Dates: start: 20131216, end: 20140213
  26. ATENOLOL. [Suspect]
     Active Substance: ATENOLOL
     Dosage: 25 QD
     Route: 048
     Dates: start: 20140218
  27. LERCAN [Concomitant]
     Active Substance: LERCANIDIPINE
     Indication: HYPERTENSION
     Dosage: 20 MG, QD
     Route: 048
     Dates: start: 20140228

REACTIONS (1)
  - Haemoglobin decreased [Recovered/Resolved]

NARRATIVE: CASE EVENT DATE: 20140211
